FAERS Safety Report 16973589 (Version 2)
Quarter: 2019Q4

REPORT INFORMATION
  Report Type: Spontaneous
  Country: US (occurrence: US)
  Receive Date: 20191030
  Receipt Date: 20191210
  Transmission Date: 20200122
  Serious: No
  Sender: FDA-Public Use
  Company Number: US-PFIZER INC-2019010696

PATIENT
  Age: 47 Year
  Sex: Female
  Weight: 74.38 kg

DRUGS (1)
  1. LYRICA [Suspect]
     Active Substance: PREGABALIN
     Indication: FIBROMYALGIA
     Dosage: 300 MG, 2X/DAY
     Route: 048

REACTIONS (5)
  - Feeling abnormal [Recovered/Resolved]
  - Tremor [Recovered/Resolved]
  - Myalgia [Recovered/Resolved]
  - Off label use [Unknown]
  - Withdrawal syndrome [Recovered/Resolved]
